FAERS Safety Report 9456394 (Version 2)
Quarter: 2013Q4

REPORT INFORMATION
  Report Type: Spontaneous
  Country: US (occurrence: US)
  Receive Date: 20130813
  Receipt Date: 20131003
  Transmission Date: 20140711
  Serious: No
  Sender: FDA-Public Use
  Company Number: US-PFIZER INC-2013234843

PATIENT
  Age: 63 Year
  Sex: Male
  Weight: 74.83 kg

DRUGS (4)
  1. EFFEXOR XR [Suspect]
     Indication: DEPRESSION
     Dosage: 225 MG (ONE CAPSULE OF 150MG AND ONE CAPSULE OF 75MG), 1X/DAY
     Route: 048
  2. EFFEXOR XR [Suspect]
     Dosage: 150 MG, 1X/DAY
     Route: 048
     Dates: start: 199905
  3. IBUPROFEN [Concomitant]
     Indication: PAIN
     Dosage: UNK
  4. IBUPROFEN [Concomitant]
     Indication: PAIN

REACTIONS (4)
  - Restless legs syndrome [Unknown]
  - Photosensitivity reaction [Not Recovered/Not Resolved]
  - Cough [Unknown]
  - Sunburn [Not Recovered/Not Resolved]
